FAERS Safety Report 21437980 (Version 1)
Quarter: 2022Q4

REPORT INFORMATION
  Report Type: Report from Study
  Country: US (occurrence: US)
  Receive Date: 20221011
  Receipt Date: 20221011
  Transmission Date: 20230113
  Serious: No
  Sender: FDA-Public Use
  Company Number: US-ABBVIE-4146632

PATIENT
  Sex: Male

DRUGS (10)
  1. SKYRIZI [Suspect]
     Active Substance: RISANKIZUMAB-RZAA
     Indication: Psoriasis
     Dosage: STRENGTH : 150 MILLIGRAM
     Route: 058
  2. SKYRIZI [Suspect]
     Active Substance: RISANKIZUMAB-RZAA
     Dosage: WEEK 4
     Route: 058
  3. LORATADINE-D 24HR TABLET [Concomitant]
     Indication: Product used for unknown indication
     Route: 048
  4. FLUTICASONE PROPIONATE [Concomitant]
     Active Substance: FLUTICASONE PROPIONATE
     Indication: Product used for unknown indication
     Dosage: 50 MICROGRAM
  5. ATORVASTATIN CALCIUM 10 MG TABLET [Concomitant]
     Indication: Product used for unknown indication
     Dosage: 10 MILLIGRAM
     Route: 048
  6. VITAMIN D-400 10 MCG TABLET [Concomitant]
     Indication: Product used for unknown indication
     Dosage: 10 MICROGRAM
  7. GABAPENTIN [Concomitant]
     Active Substance: GABAPENTIN
     Indication: Product used for unknown indication
     Dosage: 300 MILLIGRAM
     Route: 048
  8. PROBIOTIC 10B CELL CAPSULE [Concomitant]
     Indication: Product used for unknown indication
  9. HYDROCHLOROTHIAZIDE\LOSARTAN [Concomitant]
     Active Substance: HYDROCHLOROTHIAZIDE\LOSARTAN
     Indication: Product used for unknown indication
     Dosage: 100-12.5 MG
     Route: 048
  10. METFORMIN ER GASTRIC [Concomitant]
     Indication: Product used for unknown indication
     Route: 065

REACTIONS (1)
  - Psoriasis [Not Recovered/Not Resolved]
